FAERS Safety Report 14687390 (Version 2)
Quarter: 2020Q2

REPORT INFORMATION
  Report Type: Spontaneous
  Country: DE (occurrence: DE)
  Receive Date: 20180328
  Receipt Date: 20200522
  Transmission Date: 20200713
  Serious: Yes (Death, Other)
  Sender: FDA-Public Use
  Company Number: DE-SUN PHARMACEUTICAL INDUSTRIES LTD-2018RR-168402

PATIENT
  Age: 58 Year
  Sex: Male

DRUGS (4)
  1. GEMCITABINE. [Suspect]
     Active Substance: GEMCITABINE
     Indication: PANCREATIC CARCINOMA
     Dosage: DAILY DOSE: 6300 MG MILLIGRAM(S) EVERY 28 DAY
     Route: 065
     Dates: start: 20151111, end: 20160304
  2. ABRAXANE [Suspect]
     Active Substance: PACLITAXEL
     Dosage: DAILY DOSE: 780 MG MILLIGRAM(S) EVERY 28 DAY
     Route: 041
     Dates: start: 20151111, end: 20160219
  3. ABRAXANE [Suspect]
     Active Substance: PACLITAXEL
     Dosage: DAILY DOSE: 260 MG MILLIGRAM(S) EVERY WEEK
     Route: 041
     Dates: start: 20160113, end: 20160127
  4. ABRAXANE [Suspect]
     Active Substance: PACLITAXEL
     Indication: PANCREATIC CARCINOMA METASTATIC
     Dosage: DAILY DOSE: 300 MG MILLIGRAM(S) EVERY 28 DAY
     Route: 041
     Dates: start: 20160226, end: 20160304

REACTIONS (2)
  - Neuropathy peripheral [Not Recovered/Not Resolved]
  - Pancreatic carcinoma metastatic [Fatal]

NARRATIVE: CASE EVENT DATE: 20151230
